FAERS Safety Report 13822344 (Version 1)
Quarter: 2017Q3

REPORT INFORMATION
  Report Type: Spontaneous
  Country: US (occurrence: US)
  Receive Date: 20170801
  Receipt Date: 20170801
  Transmission Date: 20171127
  Serious: Yes (Hospitalization)
  Sender: FDA-Public Use
  Company Number: US-STRIDES ARCOLAB LIMITED-2017SP007428

PATIENT

DRUGS (2)
  1. TACROLIMUS. [Suspect]
     Active Substance: TACROLIMUS
     Indication: ANTISYNTHETASE SYNDROME
     Dosage: UNK
     Route: 065
  2. HYDROXYCHLOROQUINE [Suspect]
     Active Substance: HYDROXYCHLOROQUINE
     Indication: ANTISYNTHETASE SYNDROME
     Dosage: UNK, UNKNOWN
     Route: 065

REACTIONS (9)
  - Dyspnoea [Recovered/Resolved]
  - Respiratory distress [Recovered/Resolved]
  - Lymphadenopathy [Recovered/Resolved]
  - Lymphadenopathy mediastinal [Recovered/Resolved]
  - Respiratory failure [Recovered/Resolved]
  - Cough [Recovered/Resolved]
  - Off label use [Unknown]
  - Lung consolidation [Recovered/Resolved]
  - Peripheral T-cell lymphoma unspecified stage IV [Recovered/Resolved]
